FAERS Safety Report 5428491-8 (Version None)
Quarter: 2007Q3

REPORT INFORMATION
  Report Type: 
  Country: None (occurrence: None)
  Receive Date: 20070731
  Receipt Date: 20070611
  Transmission Date: 20080115
  Serious: No
  Sender: FDA-Public Use
  Company Number: US200705000160

PATIENT
  Age: 53 Year
  Sex: Female
  Weight: 144.7 kg

DRUGS (18)
  1. BYETTA [Suspect]
     Indication: TYPE 2 DIABETES MELLITUS
     Dosage: 5 UG, 2/D, SUBCUTANEOUS; 10 UG, 2/D, SUBCUTANEOUS
     Route: 058
     Dates: start: 20061101
  2. BYETTA [Suspect]
     Indication: TYPE 2 DIABETES MELLITUS
     Dosage: 5 UG, 2/D, SUBCUTANEOUS; 10 UG, 2/D, SUBCUTANEOUS
     Route: 058
     Dates: start: 20061201
  3. EXENATIDE PEN, DISPOSABLE DEVICE (EXENATIDE PEN) [Concomitant]
  4. PROCARDIA XL [Concomitant]
  5. TENORMIN [Concomitant]
  6. SYNTHROID [Concomitant]
  7. GLUCOTROL XL [Concomitant]
  8. ATIVAN [Concomitant]
  9. DARVOCET-N 100 [Concomitant]
  10. LASIX [Concomitant]
  11. SOMA [Concomitant]
  12. EFFEXOR XR [Concomitant]
  13. GLUCOPHAGE [Concomitant]
  14. CELEBREX [Concomitant]
  15. RANITIDINE [Concomitant]
  16. AMBIEN [Concomitant]
  17. PREVACID [Concomitant]
  18. CLONIDINE [Concomitant]

REACTIONS (5)
  - CHEILITIS [None]
  - DECREASED APPETITE [None]
  - INCREASED APPETITE [None]
  - LIP SWELLING [None]
  - WEIGHT DECREASED [None]
